FAERS Safety Report 14167380 (Version 8)
Quarter: 2018Q3

REPORT INFORMATION
  Report Type: Report from Study
  Country: GB (occurrence: GB)
  Receive Date: 20171108
  Receipt Date: 20180907
  Transmission Date: 20181010
  Serious: Yes (Hospitalization, Other)
  Sender: FDA-Public Use
  Company Number: GB-ROCHE-1998788

PATIENT
  Sex: Male

DRUGS (8)
  1. ESBRIET [Suspect]
     Active Substance: PIRFENIDONE
     Dosage: FOR 14 DAYS
     Route: 048
     Dates: start: 20170918
  2. ESBRIET [Suspect]
     Active Substance: PIRFENIDONE
     Indication: IDIOPATHIC PULMONARY FIBROSIS
     Route: 048
     Dates: start: 20170825, end: 20170926
  3. PREDNISOLONE. [Concomitant]
     Active Substance: PREDNISOLONE
     Route: 065
  4. ESBRIET [Suspect]
     Active Substance: PIRFENIDONE
     Route: 048
     Dates: start: 20170908, end: 20170910
  5. DIGOXIN. [Concomitant]
     Active Substance: DIGOXIN
     Route: 065
  6. VERAPAMIL [Concomitant]
     Active Substance: VERAPAMIL HYDROCHLORIDE
     Route: 065
  7. ESBRIET [Suspect]
     Active Substance: PIRFENIDONE
     Dosage: FOR 14 DAYS
     Route: 048
     Dates: start: 20170908, end: 20170910
  8. ESBRIET [Suspect]
     Active Substance: PIRFENIDONE
     Route: 048

REACTIONS (24)
  - Bradycardia [Unknown]
  - Oxygen saturation decreased [Unknown]
  - Dyspnoea [Unknown]
  - Memory impairment [Unknown]
  - Arthralgia [Unknown]
  - Heart rate decreased [Unknown]
  - Heart rate increased [Unknown]
  - Hypersomnia [Unknown]
  - Lethargy [Not Recovered/Not Resolved]
  - Confusional state [Unknown]
  - Fall [Unknown]
  - Hypoacusis [Unknown]
  - Heart rate irregular [Unknown]
  - Hypertension [Unknown]
  - Decreased appetite [Unknown]
  - Cough [Not Recovered/Not Resolved]
  - Cardiomyopathy [Unknown]
  - Sneezing [Unknown]
  - Visual impairment [Unknown]
  - Ill-defined disorder [Unknown]
  - Peripheral swelling [Recovering/Resolving]
  - Fatigue [Unknown]
  - Gait disturbance [Not Recovered/Not Resolved]
  - Respiratory disorder [Unknown]
